FAERS Safety Report 10873425 (Version 1)
Quarter: 2015Q1

REPORT INFORMATION
  Report Type: Other
  Country: JP (occurrence: JP)
  Receive Date: 20150227
  Receipt Date: 20150227
  Transmission Date: 20150721
  Serious: Yes (Other)
  Sender: FDA-Public Use
  Company Number: JP-ACTELION-A-CH2015-113513

PATIENT

DRUGS (2)
  1. BERAPROST [Concomitant]
     Active Substance: BERAPROST
  2. TRACLEER [Suspect]
     Active Substance: BOSENTAN\BOSENTAN MONOHYDRATE
     Indication: PULMONARY ARTERIAL HYPERTENSION
     Dosage: UNK
     Route: 048

REACTIONS (3)
  - Vascular resistance pulmonary increased [Recovering/Resolving]
  - Respiratory failure [Recovering/Resolving]
  - Surgery [Unknown]
